FAERS Safety Report 25633195 (Version 2)
Quarter: 2025Q3

REPORT INFORMATION
  Report Type: Spontaneous
  Country: IR (occurrence: IR)
  Receive Date: 20250801
  Receipt Date: 20250814
  Transmission Date: 20251021
  Serious: Yes (Other)
  Sender: RANBAXY
  Company Number: IR-SUN PHARMACEUTICAL INDUSTRIES LTD-2025R1-519894

PATIENT
  Age: 46 Year
  Sex: Female

DRUGS (3)
  1. PREDNISONE [Suspect]
     Active Substance: PREDNISONE
     Indication: Plasma cell mastitis
     Dosage: 15 MILLIGRAM, DAILY
     Route: 065
  2. PREDNISONE [Suspect]
     Active Substance: PREDNISONE
     Dosage: 20 MILLIGRAM, DAILY
     Route: 065
  3. METHOTREXATE [Suspect]
     Active Substance: METHOTREXATE
     Indication: Plasma cell mastitis
     Dosage: 12.5 MILLIGRAM, WEEKLY
     Route: 065

REACTIONS (1)
  - Invasive ductal breast carcinoma [Unknown]
